FAERS Safety Report 19279441 (Version 2)
Quarter: 2021Q2

REPORT INFORMATION
  Report Type: Spontaneous
  Country: US (occurrence: US)
  Receive Date: 20210520
  Receipt Date: 20210527
  Transmission Date: 20210717
  Serious: No
  Sender: FDA-Public Use
  Company Number: US-BAYER-2021-143159

PATIENT
  Age: 81 Year
  Sex: Male

DRUGS (2)
  1. ALEVE PM [Suspect]
     Active Substance: DIPHENHYDRAMINE HYDROCHLORIDE\NAPROXEN SODIUM
     Indication: INSOMNIA
     Dosage: 1 DF, QD
     Route: 048
     Dates: start: 202104
  2. ALEVE PM [Suspect]
     Active Substance: DIPHENHYDRAMINE HYDROCHLORIDE\NAPROXEN SODIUM
     Indication: INSOMNIA
     Dosage: 2 DF
     Dates: start: 2020

REACTIONS (3)
  - Somnolence [None]
  - Incorrect dose administered [Unknown]
  - Abnormal dreams [Unknown]

NARRATIVE: CASE EVENT DATE: 2020
